FAERS Safety Report 21812524 (Version 2)
Quarter: 2023Q1

REPORT INFORMATION
  Report Type: Spontaneous
  Country: JP (occurrence: JP)
  Receive Date: 20230103
  Receipt Date: 20230317
  Transmission Date: 20230417
  Serious: Yes (Death, Hospitalization)
  Sender: FDA-Public Use
  Company Number: JP-TEVA-2022-JP-2842193

PATIENT
  Age: 77 Year
  Sex: Female

DRUGS (9)
  1. PREDNISOLONE [Suspect]
     Active Substance: PREDNISOLONE
     Indication: Haemolytic anaemia
     Dosage: 5-15MG/DAY , ADDITIONAL INFO: PREDNISOLONE DOSE WAS INCREASED TO 1 MG/KG
     Route: 048
  2. PREDNISOLONE [Suspect]
     Active Substance: PREDNISOLONE
     Indication: Cold type haemolytic anaemia
  3. IBRUTINIB [Suspect]
     Active Substance: IBRUTINIB
     Indication: Chronic lymphocytic leukaemia
     Dosage: RECEIVED MONOTHERAPY FROM DAY 1-7 , 280 MG
     Route: 065
  4. IBRUTINIB [Suspect]
     Active Substance: IBRUTINIB
     Dosage: RECEIVED MONOTHERAPY FROM DAY 8-15 , 420 MG
     Route: 065
  5. IBRUTINIB [Suspect]
     Active Substance: IBRUTINIB
     Dosage: ON DAY 21 , 140 MG
     Route: 065
  6. SULFAMETHOXAZOLE\TRIMETHOPRIM [Suspect]
     Active Substance: SULFAMETHOXAZOLE\TRIMETHOPRIM
     Indication: Antibiotic therapy
     Route: 065
  7. PACLITAXEL [Concomitant]
     Active Substance: PACLITAXEL
     Indication: Ovarian cancer
     Dosage: AS A PART OF TC THERAPY, ADDITIONAL INFO: ACTION TAKEN: RECEIVED 6 COURSES OF TC THERAPY
     Route: 065
     Dates: start: 2013
  8. CARBOPLATIN [Concomitant]
     Active Substance: CARBOPLATIN
     Indication: Ovarian cancer
     Dosage: AS A PART OF TC THERAPY , ADDITIONAL INFO: ACTION TAKEN: RECEIVED 6 COURSES OF TC THERAPY
     Route: 065
     Dates: start: 2013
  9. PROPYLTHIOURACIL [Concomitant]
     Active Substance: PROPYLTHIOURACIL
     Indication: Hyperthyroidism
     Route: 065

REACTIONS (3)
  - Cerebral haemorrhage [Fatal]
  - Drug eruption [Unknown]
  - Drug ineffective [Unknown]
